FAERS Safety Report 4298224-X (Version None)
Quarter: 2004Q1

REPORT INFORMATION
  Report Type: 
  Country: None (occurrence: None)
  Receive Date: 20040218
  Receipt Date: 20030417
  Transmission Date: 20041129
  Serious: No
  Sender: FDA-Public Use
  Company Number: US-BRISTOL-MYERS SQUIBB COMPANY-12245510

PATIENT
  Sex: Female
  Weight: 109 kg

DRUGS (1)
  1. STADOL [Suspect]
     Indication: MIGRAINE
     Dosage: 10ML 2MG/ML AS NEEDED.
     Route: 045

REACTIONS (1)
  - DRUG INEFFECTIVE [None]
